FAERS Safety Report 5421488-3 (Version None)
Quarter: 2007Q3

REPORT INFORMATION
  Report Type: 
  Country: None (occurrence: None)
  Receive Date: 20070817
  Receipt Date: 20070725
  Transmission Date: 20080115
  Serious: Yes (Life-Threatening, Disabling)
  Sender: FDA-Public Use
  Company Number: 6030868

PATIENT
  Age: 25 Year
  Sex: Male

DRUGS (3)
  1. PAROXETINE [Suspect]
     Indication: DEPRESSION
     Dosage: (30 MG) ORAL
     Route: 048
     Dates: start: 20020628
  2. ZOPICLONE(ZOPICLONE) [Suspect]
     Indication: SLEEP DISORDER
     Dosage: (1 IN 1 D) ORAL
     Route: 048
     Dates: start: 20001001, end: 20030901
  3. DOSULEPIN(DOSULEPIN) [Concomitant]

REACTIONS (12)
  - AGGRESSION [None]
  - AMNESIA [None]
  - DEPENDENCE [None]
  - DRUG INTERACTION [None]
  - DRUG WITHDRAWAL SYNDROME [None]
  - HEADACHE [None]
  - HOMICIDE [None]
  - HYPERHIDROSIS [None]
  - NAUSEA [None]
  - NIGHTMARE [None]
  - SOMNAMBULISM [None]
  - TREMOR [None]
